FAERS Safety Report 6086017-2 (Version None)
Quarter: 2009Q1

REPORT INFORMATION
  Report Type: 
  Country: None (occurrence: None)
  Receive Date: 20090220
  Receipt Date: 20090217
  Transmission Date: 20090719
  Serious: Yes (Other)
  Sender: FDA-Public Use
  Company Number: CR-AMGEN-US334408

PATIENT
  Age: 38 Year
  Sex: Female
  Weight: 50 kg

DRUGS (4)
  1. ENBREL [Suspect]
     Indication: ANKYLOSING SPONDYLITIS
     Route: 058
     Dates: start: 20070101, end: 20080801
  2. INDOMETHACIN [Concomitant]
     Indication: INFLAMMATION
     Route: 065
  3. LEFLUNOMIDE [Concomitant]
     Indication: MUSCULOSKELETAL PAIN
     Route: 065
  4. PREDNISOLONE [Concomitant]
     Indication: INFLAMMATION
     Route: 065

REACTIONS (3)
  - PLEURAL EFFUSION [None]
  - PNEUMONIA [None]
  - TUBERCULOSIS [None]
